FAERS Safety Report 23153025 (Version 1)
Quarter: 2023Q4

REPORT INFORMATION
  Report Type: Spontaneous
  Country: None (occurrence: CN)
  Receive Date: 20231107
  Receipt Date: 20231107
  Transmission Date: 20240109
  Serious: Yes (Other)
  Sender: FDA-Public Use
  Company Number: CN-Jiangsu Hengrui Medicine Co., Ltd.-2147903

PATIENT
  Age: 64 Year
  Sex: Male
  Weight: 60 kg

DRUGS (5)
  1. DAPTOMYCIN [Suspect]
     Active Substance: DAPTOMYCIN
     Indication: Anti-infective therapy
  2. VANCOMYCIN [Suspect]
     Active Substance: VANCOMYCIN
  3. MEROPENEM [Suspect]
     Active Substance: MEROPENEM
  4. INDOMETHACIN [Concomitant]
     Active Substance: INDOMETHACIN
  5. LINEZOLID [Concomitant]
     Active Substance: LINEZOLID

REACTIONS (4)
  - Gastrointestinal haemorrhage [Recovered/Resolved]
  - Hepatic function abnormal [Recovered/Resolved]
  - Coagulopathy [Recovered/Resolved]
  - Drug interaction [Unknown]
